FAERS Safety Report 5259955-8 (Version None)
Quarter: 2007Q1

REPORT INFORMATION
  Report Type: 
  Country: None (occurrence: None)
  Receive Date: 20070309
  Receipt Date: 20070301
  Transmission Date: 20070707
  Serious: Yes (Hospitalization)
  Sender: FDA-Public Use
  Company Number: 07/2/128

PATIENT
  Age: 66 Year
  Sex: Male

DRUGS (2)
  1. LAMOTRIGINE [Suspect]
  2. NO THERAPY [Suspect]

REACTIONS (1)
  - WRIST FRACTURE [None]
